FAERS Safety Report 6843445-2 (Version None)
Quarter: 2010Q3

REPORT INFORMATION
  Report Type: 
  Country: None (occurrence: None)
  Receive Date: 20100712
  Receipt Date: 20100702
  Transmission Date: 20110219
  Serious: Yes (Life-Threatening, Hospitalization, Other)
  Sender: FDA-Public Use
  Company Number: RB-12443-2010

PATIENT
  Sex: Male

DRUGS (5)
  1. SUBUTEX [Suspect]
     Indication: DRUG DEPENDENCE
     Dates: start: 20030101, end: 20030101
  2. SUBUTEX [Suspect]
     Indication: DRUG DEPENDENCE
     Dates: start: 20080416
  3. VALLERGAN [Concomitant]
  4. SOBRIL [Concomitant]
  5. IMOVANE [Concomitant]

REACTIONS (2)
  - CARDIAC ARREST [None]
  - LOSS OF CONSCIOUSNESS [None]
